FAERS Safety Report 16679193 (Version 2)
Quarter: 2019Q3

REPORT INFORMATION
  Report Type: Spontaneous
  Country: US (occurrence: US)
  Receive Date: 20190807
  Receipt Date: 20190814
  Transmission Date: 20191004
  Serious: No
  Sender: FDA-Public Use
  Company Number: US-AMGEN INC.-USASP2019120949

PATIENT
  Age: 53 Year
  Sex: Female

DRUGS (1)
  1. AIMOVIG [Suspect]
     Active Substance: ERENUMAB-AOOE
     Indication: CEREBROVASCULAR ACCIDENT
     Dosage: 70 MILLIGRAM, QMO
     Route: 065
     Dates: start: 20190626

REACTIONS (2)
  - Wrong technique in product usage process [Unknown]
  - Injury associated with device [Unknown]

NARRATIVE: CASE EVENT DATE: 20190726
